FAERS Safety Report 24244288 (Version 1)
Quarter: 2024Q3

REPORT INFORMATION
  Report Type: Spontaneous
  Country: US (occurrence: None)
  Receive Date: 20240823
  Receipt Date: 20240823
  Transmission Date: 20241017
  Serious: Yes (Other)
  Sender: EMMAUS LIFE SCIENCES
  Company Number: US-Emmaus Medical, Inc.-EMM202402-000075

PATIENT
  Age: 7 Year
  Sex: Female
  Weight: 22.4 kg

DRUGS (3)
  1. ENDARI [Suspect]
     Active Substance: GLUTAMINE
     Indication: Thalassaemia beta
     Dosage: 5 G
     Route: 048
     Dates: start: 202310
  2. ENDARI [Suspect]
     Active Substance: GLUTAMINE
     Dosage: 5 G
     Route: 048
     Dates: start: 202401
  3. PERIACTIN [Concomitant]
     Active Substance: CYPROHEPTADINE HYDROCHLORIDE
     Indication: Product used for unknown indication
     Dosage: UNKNOWN
     Route: 065

REACTIONS (2)
  - Sickle cell anaemia with crisis [Recovered/Resolved]
  - Product dose omission issue [Unknown]

NARRATIVE: CASE EVENT DATE: 20231001
